FAERS Safety Report 24118336 (Version 16)
Quarter: 2025Q2

REPORT INFORMATION
  Report Type: Report from Study
  Country: CA (occurrence: CA)
  Receive Date: 20240722
  Receipt Date: 20250611
  Transmission Date: 20250717
  Serious: Yes (Death, Hospitalization, Other)
  Sender: BIOCON
  Company Number: CA-BIOCON BIOLOGICS LIMITED-BBL2024005331

PATIENT

DRUGS (2)
  1. HULIO [Suspect]
     Active Substance: ADALIMUMAB-FKJP
     Indication: Rheumatoid arthritis
     Dosage: 40 MG, Q2W
     Route: 058
  2. HULIO [Suspect]
     Active Substance: ADALIMUMAB-FKJP
     Dosage: 40 MG, Q2W, EVERY OTHER WEEK
     Route: 058
     Dates: start: 20240626

REACTIONS (10)
  - Death [Fatal]
  - Nephrolithiasis [Unknown]
  - Cholelithiasis [Recovered/Resolved]
  - Fall [Unknown]
  - Wrist fracture [Unknown]
  - Dementia [Unknown]
  - Product dose omission issue [Unknown]
  - Lack of injection site rotation [Unknown]
  - Product administered at inappropriate site [Unknown]
  - Inappropriate schedule of product administration [Unknown]

NARRATIVE: CASE EVENT DATE: 20250116
